FAERS Safety Report 5216958-7 (Version None)
Quarter: 2007Q1

REPORT INFORMATION
  Report Type: 
  Country: None (occurrence: None)
  Receive Date: 20070124
  Receipt Date: 20070112
  Transmission Date: 20070707
  Serious: Yes (Life-Threatening, Hospitalization, Other)
  Sender: FDA-Public Use
  Company Number: US-JNJFOC-20070102716

PATIENT

DRUGS (2)
  1. RISPERDAL [Suspect]
     Indication: MEDICATION ERROR
  2. REQUIP [Suspect]
     Indication: RESTLESS LEGS SYNDROME
     Route: 048

REACTIONS (3)
  - ADVERSE EVENT [None]
  - INTUBATION [None]
  - MEDICATION ERROR [None]
